FAERS Safety Report 10059251 (Version 1)
Quarter: 2014Q2

REPORT INFORMATION
  Report Type: Spontaneous
  Country: IT (occurrence: IT)
  Receive Date: 20140404
  Receipt Date: 20140404
  Transmission Date: 20141212
  Serious: Yes (Other)
  Sender: FDA-Public Use
  Company Number: IT-ASTRAZENECA-2014SE21873

PATIENT
  Age: 29532 Day
  Sex: Male

DRUGS (1)
  1. BRILIQUE [Suspect]
     Indication: SUBCLAVIAN ARTERY STENOSIS
     Route: 048
     Dates: start: 20130902, end: 20130906

REACTIONS (3)
  - Wheezing [Recovering/Resolving]
  - Pruritus [Recovering/Resolving]
  - Urticaria [Recovering/Resolving]
